FAERS Safety Report 7828019-9 (Version None)
Quarter: 2011Q4

REPORT INFORMATION
  Report Type: 
  Country: None (occurrence: None)
  Receive Date: 20111020
  Receipt Date: 20111013
  Transmission Date: 20120403
  Serious: Yes (Other)
  Sender: FDA-Public Use
  Company Number: US-GLAXOSMITHKLINE-A0942526A

PATIENT
  Age: 80 Year
  Sex: Male
  Weight: 79.5 kg

DRUGS (8)
  1. IMDUR [Concomitant]
     Dosage: 60MG PER DAY
  2. HORIZANT [Suspect]
     Indication: RESTLESS LEGS SYNDROME
     Dosage: 600MG SINGLE DOSE
     Route: 048
     Dates: start: 20110819, end: 20110819
  3. REQUIP [Concomitant]
     Dosage: 4MG PER DAY
  4. CELEBREX [Concomitant]
     Dosage: 200MG PER DAY
  5. TOPROL-XL [Concomitant]
     Dosage: 12.5MG PER DAY
  6. PLAVIX [Concomitant]
     Dosage: 75MG PER DAY
  7. LYRICA [Concomitant]
     Dosage: 75MG PER DAY
  8. AVODART [Concomitant]
     Dosage: .5MG PER DAY

REACTIONS (5)
  - PELVIC FRACTURE [None]
  - FALL [None]
  - INTESTINAL OBSTRUCTION [None]
  - DIZZINESS [None]
  - CONFUSIONAL STATE [None]
